FAERS Safety Report 7204488-2 (Version None)
Quarter: 2010Q4

REPORT INFORMATION
  Report Type: 
  Country: None (occurrence: None)
  Receive Date: 20101230
  Receipt Date: 20101220
  Transmission Date: 20110411
  Serious: Yes (Hospitalization, Other)
  Sender: FDA-Public Use
  Company Number: FR-WATSON-2010-16236

PATIENT
  Age: 54 Year
  Sex: Male

DRUGS (1)
  1. PREDNISOLONE ACETATE [Suspect]
     Indication: BACK PAIN
     Dosage: 125 MG, SINGLE
     Route: 008

REACTIONS (3)
  - DRUG ADMINISTRATION ERROR [None]
  - HYPERTONIC BLADDER [None]
  - PARAPLEGIA [None]
